FAERS Safety Report 5767640-9 (Version None)
Quarter: 2008Q2

REPORT INFORMATION
  Report Type: 
  Country: None (occurrence: None)
  Receive Date: 20080612
  Receipt Date: 20080609
  Transmission Date: 20081010
  Serious: Yes (Death)
  Sender: FDA-Public Use
  Company Number: JP-SANOFI-SYNTHELABO-F01200801001

PATIENT
  Sex: Male
  Weight: 65 kg

DRUGS (6)
  1. LANSOPRAZOLE [Concomitant]
     Dosage: 15 MG
     Route: 048
     Dates: start: 20070309, end: 20070607
  2. NOVOLIN [Concomitant]
     Route: 065
     Dates: start: 20070309, end: 20070607
  3. NATRIX [Concomitant]
     Indication: DIABETES MELLITUS
     Dosage: 2 MG
     Route: 048
     Dates: start: 20070309, end: 20070610
  4. BLOPRESS [Concomitant]
     Indication: HYPERTENSION
     Dosage: 8 MG
     Route: 048
     Dates: start: 20070309, end: 20070610
  5. TICLOPIDINE HYDROCHLORIDE [Concomitant]
     Dosage: 100 MG
     Route: 065
     Dates: start: 20070110, end: 20070414
  6. CLOPIDOGREL [Suspect]
     Indication: ARTERIAL THROMBOSIS
     Dosage: 75 MG
     Route: 048
     Dates: start: 20070415, end: 20070610

REACTIONS (1)
  - ISCHAEMIC CEREBRAL INFARCTION [None]
